FAERS Safety Report 6166593-1 (Version None)
Quarter: 2009Q2

REPORT INFORMATION
  Report Type: 
  Country: None (occurrence: None)
  Receive Date: 20090424
  Receipt Date: 20080313
  Transmission Date: 20091009
  Serious: No
  Sender: FDA-Public Use
  Company Number: US-ASTRAZENECA-2008UW05142

PATIENT
  Sex: Female

DRUGS (1)
  1. ZOMIG [Suspect]
     Indication: MIGRAINE

REACTIONS (2)
  - DRUG INEFFECTIVE [None]
  - THROAT IRRITATION [None]
